FAERS Safety Report 9717743 (Version 1)
Quarter: 2013Q4

REPORT INFORMATION
  Report Type: Spontaneous
  Country: US (occurrence: US)
  Receive Date: 20131127
  Receipt Date: 20131127
  Transmission Date: 20140711
  Serious: Yes (Hospitalization)
  Sender: FDA-Public Use
  Company Number: US-GLAXOSMITHKLINE-A1045998A

PATIENT
  Age: 63 Year
  Sex: Female

DRUGS (2)
  1. VENTOLIN [Suspect]
     Indication: RESPIRATORY DISORDER
     Dosage: 90MCG UNKNOWN
     Route: 065
     Dates: start: 20101111
  2. ADVAIR [Suspect]
     Indication: RESPIRATORY DISORDER
     Route: 065
     Dates: start: 20101111

REACTIONS (3)
  - Bronchitis [Unknown]
  - Therapy cessation [Unknown]
  - Surgery [Unknown]
